FAERS Safety Report 24344913 (Version 2)
Quarter: 2024Q3

REPORT INFORMATION
  Report Type: Spontaneous
  Country: SI (occurrence: SI)
  Receive Date: 20240920
  Receipt Date: 20240927
  Transmission Date: 20241016
  Serious: Yes (Death, Other)
  Sender: Vantive US Healthcare
  Company Number: SI-VANTIVE-2024VAN019802

PATIENT
  Sex: Female

DRUGS (2)
  1. CALCIUM CHLORIDE\DEXTROSE MONOHYDRATE\LACTIC ACID\MAGNESIUM CHLORIDE\P [Suspect]
     Active Substance: CALCIUM CHLORIDE\DEXTROSE MONOHYDRATE\LACTIC ACID\MAGNESIUM CHLORIDE\POTASSIUM CHLORIDE\SODIUM BICAR
     Dosage: 2X 5L
     Route: 033
     Dates: end: 20240910
  2. EXTRANEAL [Suspect]
     Active Substance: CALCIUM CHLORIDE\ICODEXTRIN\MAGNESIUM CHLORIDE\SODIUM CHLORIDE\SODIUM LACTATE
     Dosage: UNK
     Route: 033
     Dates: end: 20240910

REACTIONS (1)
  - Cardiovascular disorder [Fatal]
